FAERS Safety Report 8033998 (Version 2)
Quarter: 2013Q3

REPORT INFORMATION
  Report Type: Report from Study
  Country: JP (occurrence: JP)
  Receive Date: 20110713
  Receipt Date: 20130709
  Transmission Date: 20140515
  Serious: Yes (Hospitalization)
  Sender: FDA-Public Use
  Company Number: PHHY2011JP35622

PATIENT
  Age: 50 Year
  Sex: Female

DRUGS (43)
  1. NEORAL [Suspect]
     Indication: MYELODYSPLASTIC SYNDROME
     Dosage: 300 MG, UNK
     Route: 048
     Dates: start: 20090904, end: 20091207
  2. NEORAL [Suspect]
     Dosage: 40 MG, UNK
     Route: 048
     Dates: end: 20100330
  3. NEORAL [Suspect]
     Dosage: 20 MG, UNK
     Route: 048
     Dates: start: 20100331, end: 20100406
  4. NEORAL [Suspect]
     Dosage: 140 MG, UNK
     Route: 048
     Dates: start: 20100428, end: 20100511
  5. NEORAL [Suspect]
     Dosage: 150MG , UNK
     Route: 048
     Dates: start: 20100512, end: 20100518
  6. NEORAL [Suspect]
     Dosage: 300 UNK, UNK
     Route: 048
     Dates: start: 20100519, end: 20100601
  7. NEORAL [Suspect]
     Dosage: 240 MG, UNK
     Route: 048
     Dates: start: 20100602, end: 20100615
  8. NEORAL [Suspect]
     Dosage: 200 MG, UNK
     Route: 048
     Dates: start: 20100616, end: 20100622
  9. NEORAL [Suspect]
     Dosage: 220 MG, UNK
     Route: 048
     Dates: start: 20100623, end: 20100630
  10. NEORAL [Suspect]
     Dosage: 200 MG, UNK
     Route: 048
     Dates: start: 20100701, end: 20100702
  11. NEORAL [Suspect]
     Dosage: 240 MG, UNK
     Route: 048
     Dates: start: 20100703, end: 20100720
  12. NEORAL [Suspect]
     Dosage: 200MG, UNK
     Route: 048
     Dates: start: 20100721, end: 20100727
  13. NEORAL [Suspect]
     Dosage: 100 MG , UNK
     Route: 048
     Dates: start: 20100728, end: 20100803
  14. NEORAL [Suspect]
     Dosage: 200MG , UNK
     Route: 048
     Dates: start: 20100804, end: 20100824
  15. NEORAL [Suspect]
     Dosage: 160 MG, UNK
     Route: 048
     Dates: start: 20100825, end: 20100910
  16. NEORAL [Suspect]
     Dosage: 60 MG, UNK
     Route: 048
     Dates: start: 20100911
  17. ICL670A [Suspect]
     Indication: IRON OVERLOAD
     Dosage: 1000 MG, DAILY
     Route: 048
     Dates: start: 20090910, end: 20100106
  18. OMEPRAL [Concomitant]
     Route: 048
     Dates: start: 20090910
  19. DEPAS [Concomitant]
     Indication: INSOMNIA
     Route: 048
     Dates: start: 20090910
  20. BAKTAR [Concomitant]
     Indication: INFECTION PROPHYLAXIS
     Dosage: 1 DF
     Route: 048
     Dates: start: 20090910, end: 20100329
  21. PREDONINE [Concomitant]
     Indication: MYELODYSPLASTIC SYNDROME
     Dosage: UNK UKN, UNK
     Route: 048
     Dates: start: 20090910
  22. MAGMITT [Concomitant]
     Indication: CONSTIPATION
     Dosage: 990 MG,
     Route: 048
  23. MYCOSYST [Concomitant]
     Indication: INFECTION PROPHYLAXIS
     Dosage: 200 MG,
     Route: 048
  24. LASIX [Concomitant]
     Route: 048
     Dates: start: 20090910
  25. LAXOBERON [Concomitant]
     Indication: CONSTIPATION
     Dosage: UNK UKN, UNK
     Route: 048
     Dates: start: 20090910
  26. RINDERON -V [Concomitant]
     Indication: GRAFT VERSUS HOST DISEASE
     Dosage: UNK UKN, UNK
     Dates: start: 20090910
  27. CIPROXAN [Concomitant]
     Dosage: UNK UKN, UNK
     Route: 048
     Dates: start: 20091205
  28. CELESTAMIN [Concomitant]
     Dosage: UNK UKN, UNK
     Route: 048
     Dates: start: 20091128
  29. RITUXAN [Concomitant]
     Indication: REFRACTORINESS TO PLATELET TRANSFUSION
     Dosage: UNK UKN, UNK
     Dates: start: 20091127
  30. GLYCERIN [Concomitant]
     Dosage: UNK UKN, UNK
     Dates: start: 20091227
  31. VFEND [Concomitant]
     Dosage: UNK UKN, UNK
     Route: 048
     Dates: start: 20091226
  32. ASCORBIC ACID [Concomitant]
     Indication: MYELODYSPLASTIC SYNDROME
     Dosage: 1999.998 MG,
     Route: 048
     Dates: start: 20100310
  33. ASCORBIC ACID [Concomitant]
     Dosage: 1500 MG,
     Route: 048
     Dates: start: 20100817
  34. URSO [Concomitant]
     Dosage: 600 MG,
     Route: 048
  35. GASMOTIN [Concomitant]
     Indication: GASTROINTESTINAL DISORDER
     Dosage: 15 MG,
     Route: 048
     Dates: start: 20100316
  36. PYDOXAL [Concomitant]
     Indication: MYELODYSPLASTIC SYNDROME
     Dosage: 30 MG,
     Route: 048
     Dates: start: 20100331
  37. PYDOXAL [Concomitant]
     Dosage: 30 MG,
     Route: 048
     Dates: start: 20100817
  38. MIYA-BM [Concomitant]
     Dosage: 3 G,
     Route: 048
  39. JUVELA [Concomitant]
     Indication: PROPHYLAXIS
     Dosage: 150 MG,
     Route: 048
     Dates: start: 20100331
  40. BENAMBAX [Concomitant]
     Indication: PROPHYLAXIS
     Dosage: 300 MG,
     Dates: start: 20100623, end: 20100818
  41. ZOVIRAX [Concomitant]
     Indication: ANTIVIRAL PROPHYLAXIS
     Dosage: 600 MG,
     Route: 048
     Dates: start: 20100811, end: 20100817
  42. JUVELA NICOTINATE [Concomitant]
     Dosage: 600 MG,
     Route: 048
     Dates: start: 20100811, end: 20100817
  43. HACHIAZULE [Concomitant]
     Indication: STOMATITIS
     Dosage: 4 G, UNK
     Route: 048
     Dates: start: 20100331, end: 20100513

REACTIONS (8)
  - Pancytopenia [Not Recovered/Not Resolved]
  - Blood creatinine increased [Recovering/Resolving]
  - Haemorrhoids [Unknown]
  - Stomatitis [Unknown]
  - Blood bilirubin increased [Recovering/Resolving]
  - Pyrexia [Recovered/Resolved]
  - Renal impairment [Recovering/Resolving]
  - Platelet count increased [Unknown]
